FAERS Safety Report 8556938-7 (Version None)
Quarter: 2012Q3

REPORT INFORMATION
  Report Type: 
  Country: None (occurrence: None)
  Receive Date: 20120801
  Receipt Date: 20120726
  Transmission Date: 20120928
  Serious: Yes (Other)
  Sender: FDA-Public Use
  Company Number: CA-ROCHE-1028735

PATIENT
  Sex: Female
  Weight: 96.112 kg

DRUGS (6)
  1. VENTOLIN [Concomitant]
     Route: 065
  2. XOLAIR [Suspect]
     Route: 058
     Dates: start: 20100305
  3. ADVAIR [Concomitant]
     Route: 065
  4. XOLAIR [Suspect]
     Indication: ASTHMA
     Route: 058
     Dates: start: 20100219
  5. SINGULAIR [Concomitant]
     Route: 065
  6. XOLAIR [Suspect]
     Route: 058
     Dates: start: 20100318, end: 20100908

REACTIONS (8)
  - HYPERSENSITIVITY [None]
  - INFLUENZA [None]
  - URTICARIA [None]
  - WEIGHT DECREASED [None]
  - RASH GENERALISED [None]
  - LOWER RESPIRATORY TRACT INFECTION [None]
  - URINARY TRACT INFECTION [None]
  - INJECTION SITE PAIN [None]
